FAERS Safety Report 20764860 (Version 2)
Quarter: 2022Q2

REPORT INFORMATION
  Report Type: Spontaneous
  Country: US (occurrence: US)
  Receive Date: 20220428
  Receipt Date: 20220509
  Transmission Date: 20220721
  Serious: Yes (Other)
  Sender: FDA-Public Use
  Company Number: US-TEVA-2022-US-2030215

PATIENT
  Age: 57 Year
  Sex: Male

DRUGS (7)
  1. PREDNISONE [Suspect]
     Active Substance: PREDNISONE
     Indication: Eosinophilic pneumonia chronic
     Dosage: 40 MILLIGRAM DAILY;
     Route: 065
     Dates: start: 201411
  2. PREDNISONE [Suspect]
     Active Substance: PREDNISONE
     Dosage: THE PATIENT REMAINED ON MODERATE DOSES (10 - 15 MG) OF DAILY PREDNISONE.
     Route: 065
  3. PREDNISONE [Suspect]
     Active Substance: PREDNISONE
     Dosage: EVENTUALLY, PREDNISONE WAS WEANED OFF IN FEBRUARY 2017.
     Route: 065
     Dates: end: 201702
  4. PREDNISONE [Suspect]
     Active Substance: PREDNISONE
     Dosage: 40 MILLIGRAM DAILY; RECEIVED ANOTHER COURSE OF PREDNISONE 40 MG/D FOR 5 DAYS
     Route: 065
  5. PREDNISONE [Suspect]
     Active Substance: PREDNISONE
     Dosage: WAS WEANED OFF PREDNISONE AFTER 4 MONTHS
     Route: 065
  6. TAMSULOSIN [Concomitant]
     Active Substance: TAMSULOSIN
     Indication: Benign prostatic hyperplasia
     Route: 065
  7. FLUTICASONE PROPIONATE-SALMETEROL [Concomitant]
     Indication: Asthma
     Dosage: 2 DOSAGE FORMS DAILY;
     Route: 065

REACTIONS (4)
  - Weight increased [Unknown]
  - Osteopenia [Unknown]
  - Type 2 diabetes mellitus [Unknown]
  - Off label use [Unknown]
